FAERS Safety Report 18060910 (Version 1)
Quarter: 2020Q3

REPORT INFORMATION
  Report Type: Spontaneous
  Country: CN (occurrence: CN)
  Receive Date: 20200723
  Receipt Date: 20200723
  Transmission Date: 20201103
  Serious: Yes (Other)
  Sender: FDA-Public Use
  Company Number: CN-JNJFOC-20200622850

PATIENT
  Age: 52 Year
  Sex: Female

DRUGS (2)
  1. TRAMADOL HYDROCHLORIDE. [Suspect]
     Active Substance: TRAMADOL HYDROCHLORIDE
     Indication: POSTOPERATIVE CARE
     Dosage: 50 MILLIGRAM, 2/DAY
     Route: 042
  2. TRAMADOL HYDROCHLORIDE. [Suspect]
     Active Substance: TRAMADOL HYDROCHLORIDE
     Indication: CHILLS

REACTIONS (6)
  - Stridor [Recovered/Resolved]
  - Heart rate increased [Recovered/Resolved]
  - Oxygen saturation decreased [Recovered/Resolved]
  - Respiratory depression [Recovered/Resolved]
  - Asthma [Recovered/Resolved]
  - Muscle tightness [Recovered/Resolved]

NARRATIVE: CASE EVENT DATE: 20190226
